FAERS Safety Report 8924886 (Version 1)
Quarter: 2012Q4

REPORT INFORMATION
  Report Type: 
  Country: JP (occurrence: JP)
  Receive Date: 20121126
  Receipt Date: 20121126
  Transmission Date: 20130627
  Serious: Yes (Other)
  Sender: FDA-Public Use
  Company Number: JP-BAXTER-2012BAX020105

PATIENT
  Sex: Female

DRUGS (5)
  1. DIANEAL-N PD-4 1.5 PD SOLUTION [Suspect]
     Indication: AUTOMATED PERITONEAL DIALYSIS
     Route: 033
  2. DIANEAL-N PD-4 1.5 PD SOLUTION [Suspect]
     Indication: AUTOMATED PERITONEAL DIALYSIS
     Route: 033
  3. DIANEAL-N PD-4 1.5 PD SOLUTION [Suspect]
     Indication: CAPD
     Route: 033
  4. EXTRANEAL PD SOLUTION [Suspect]
     Indication: AUTOMATED PERITONEAL DIALYSIS
     Route: 033
  5. EXTRANEAL PD SOLUTION [Suspect]
     Indication: CAPD

REACTIONS (1)
  - Abdominal distension [Recovered/Resolved]
